FAERS Safety Report 8427523-2 (Version None)
Quarter: 2012Q2

REPORT INFORMATION
  Report Type: 
  Country: None (occurrence: None)
  Receive Date: 20120323
  Receipt Date: 20111128
  Transmission Date: 20120825
  Serious: Yes (Disabling, Other)
  Sender: FDA-Public Use
  Company Number: 163-21880-11080699

PATIENT
  Age: 82 Year
  Sex: Male

DRUGS (1)
  1. REVLIMID [Suspect]
     Indication: MULTIPLE MYELOMA
     Dosage: 10 MG, DAYS 1-21 OUT OF 28 DAYS, PO
     Route: 048
     Dates: start: 20110501, end: 20110801

REACTIONS (4)
  - FATIGUE [None]
  - ANAEMIA [None]
  - ASTHENIA [None]
  - PULMONARY OEDEMA [None]
